FAERS Safety Report 13164748 (Version 2)
Quarter: 2017Q2

REPORT INFORMATION
  Report Type: Report from Study
  Country: None (occurrence: CO)
  Receive Date: 20170130
  Receipt Date: 20170413
  Transmission Date: 20170830
  Serious: Yes (Other)
  Sender: FDA-Public Use
  Company Number: CO-ABBVIE-17P-036-1856790-00

PATIENT
  Age: 65 Year
  Sex: Female
  Weight: 64 kg

DRUGS (1)
  1. HUMIRA [Suspect]
     Active Substance: ADALIMUMAB
     Indication: PSORIASIS
     Route: 058
     Dates: start: 20130905, end: 20161209

REACTIONS (3)
  - Uterine cervix atrophy [Recovered/Resolved]
  - Cervicitis [Recovered/Resolved]
  - Uterine cervical metaplasia [Recovered/Resolved]

NARRATIVE: CASE EVENT DATE: 20170112
